FAERS Safety Report 6808082-4 (Version None)
Quarter: 2010Q2

REPORT INFORMATION
  Report Type: 
  Country: None (occurrence: None)
  Receive Date: 20100629
  Receipt Date: 20090525
  Transmission Date: 20101027
  Serious: No
  Sender: FDA-Public Use
  Company Number: US-PFIZER INC-2008159165

PATIENT
  Sex: Male
  Weight: 99.8 kg

DRUGS (3)
  1. VIAGRA [Suspect]
     Indication: ERECTILE DYSFUNCTION
     Dosage: 100 MG, AS NEEDED
  2. PROCARDIA [Concomitant]
     Indication: HYPERTENSION
     Dosage: UNK
  3. ACCUPRIL [Concomitant]
     Indication: HYPERTENSION
     Dosage: UNK

REACTIONS (3)
  - DRUG INEFFECTIVE [None]
  - FLUSHING [None]
  - NASAL CONGESTION [None]
